FAERS Safety Report 6186691-6 (Version None)
Quarter: 2009Q2

REPORT INFORMATION
  Report Type: 
  Country: None (occurrence: None)
  Receive Date: 20090512
  Receipt Date: 20090502
  Transmission Date: 20091009
  Serious: Yes (Other)
  Sender: FDA-Public Use
  Company Number: PHHY2009BR16939

PATIENT
  Age: 38 Year
  Sex: Female

DRUGS (1)
  1. FORASEQ [Suspect]
     Indication: ASTHMA
     Dosage: 12/400 MCG, 1-2 TIMES/DAY

REACTIONS (3)
  - ACCIDENTAL EXPOSURE [None]
  - HYSTEROSCOPY [None]
  - UTERINE LEIOMYOMA [None]
